FAERS Safety Report 14974506 (Version 3)
Quarter: 2018Q2

REPORT INFORMATION
  Report Type: Spontaneous
  Country: US (occurrence: US)
  Receive Date: 20180605
  Receipt Date: 20180622
  Transmission Date: 20180711
  Serious: Yes (Hospitalization)
  Sender: FDA-Public Use
  Company Number: US-VIFOR (INTERNATIONAL) INC.-VIT-2018-05341

PATIENT
  Age: 63 Year
  Sex: Female

DRUGS (14)
  1. VELTASSA [Suspect]
     Active Substance: PATIROMER
     Dates: start: 201806
  2. VELTASSA [Suspect]
     Active Substance: PATIROMER
     Dates: start: 201806
  3. ATORVASTATIN CALCIUM. [Concomitant]
     Active Substance: ATORVASTATIN CALCIUM
  4. ZYRTEC [Concomitant]
     Active Substance: CETIRIZINE HYDROCHLORIDE
  5. TERAZOSIN HYDROCHLORIDE. [Concomitant]
     Active Substance: TERAZOSIN HYDROCHLORIDE
  6. HYDROXYCHLOROQUINE SULFATE. [Concomitant]
     Active Substance: HYDROXYCHLOROQUINE SULFATE
  7. VALSARTAN. [Concomitant]
     Active Substance: VALSARTAN
  8. VELTASSA [Suspect]
     Active Substance: PATIROMER
     Indication: HYPERKALAEMIA
     Route: 048
     Dates: start: 20180509
  9. COQ 10 [Concomitant]
     Active Substance: UBIDECARENONE
  10. ERGOCALCIFEROL. [Concomitant]
     Active Substance: ERGOCALCIFEROL
  11. GABAPENTIN. [Concomitant]
     Active Substance: GABAPENTIN
  12. AMLODIPINE BESILATE [Concomitant]
     Active Substance: AMLODIPINE BESYLATE
  13. ACETYLSALICYLIC ACID [Concomitant]
     Active Substance: ASPIRIN
  14. ATENOLOL. [Concomitant]
     Active Substance: ATENOLOL

REACTIONS (5)
  - Off label use [Not Recovered/Not Resolved]
  - Discomfort [Unknown]
  - Abdominal discomfort [Unknown]
  - Myocardial infarction [Unknown]
  - Abdominal pain upper [Unknown]

NARRATIVE: CASE EVENT DATE: 201805
